FAERS Safety Report 6240600-X (Version None)
Quarter: 2009Q2

REPORT INFORMATION
  Report Type: 
  Country: None (occurrence: None)
  Receive Date: 20090623
  Receipt Date: 20081024
  Transmission Date: 20091009
  Serious: No
  Sender: FDA-Public Use
  Company Number: US-ASTRAZENECA-2008UW23826

PATIENT
  Age: 79 Year
  Sex: Male
  Weight: 72.6 kg

DRUGS (5)
  1. PULMICORT RESPULES [Suspect]
     Indication: LUNG NEOPLASM MALIGNANT
     Route: 055
  2. PRIMA MIST [Concomitant]
  3. PLAVIX [Concomitant]
  4. LASIX [Concomitant]
  5. POTASSIUM CHLORIDE [Concomitant]

REACTIONS (2)
  - ASTHENIA [None]
  - DYSPNOEA [None]
